FAERS Safety Report 7944732 (Version 3)
Quarter: 2013Q3

REPORT INFORMATION
  Report Type: Report from Study
  Country: BR (occurrence: BR)
  Receive Date: 20110513
  Receipt Date: 20130902
  Transmission Date: 20140515
  Serious: Yes (Hospitalization)
  Sender: FDA-Public Use
  Company Number: BR-ASTRAZENECA-2011SE27519

PATIENT
  Age: 20566 Day
  Sex: Female
  Weight: 70 kg

DRUGS (8)
  1. NEXIUM [Suspect]
     Indication: GASTROOESOPHAGEAL REFLUX PROPHYLAXIS
     Route: 048
     Dates: start: 20090529, end: 20100503
  2. CELECOXIB; IBUPROFEN; NAPROXEN; PLACEBO [Suspect]
     Indication: RHEUMATOID ARTHRITIS
     Dosage: THREE TIMES A DAY
     Route: 048
     Dates: start: 20090529, end: 20100503
  3. TRYPTANOL [Concomitant]
     Indication: DYSTHYMIC DISORDER
     Route: 048
     Dates: start: 2006
  4. TEGRETOL [Concomitant]
     Indication: DYSTHYMIC DISORDER
     Route: 048
     Dates: start: 2006
  5. AAS [Concomitant]
     Indication: CARDIOVASCULAR EVENT PROPHYLAXIS
     Route: 048
     Dates: start: 2006
  6. CAPOTEN [Concomitant]
     Indication: HYPERTENSION
     Route: 048
     Dates: start: 2006
  7. CLORANA [Concomitant]
     Indication: HYPERTENSION
     Route: 048
     Dates: start: 2006
  8. CHLORPROMAZINE [Concomitant]
     Indication: DYSTHYMIC DISORDER
     Route: 065
     Dates: start: 20091203

REACTIONS (1)
  - Labile hypertension [Recovered/Resolved]
